FAERS Safety Report 6650581-2 (Version None)
Quarter: 2010Q1

REPORT INFORMATION
  Report Type: 
  Country: None (occurrence: None)
  Receive Date: 20100325
  Receipt Date: 20100310
  Transmission Date: 20100710
  Serious: Yes (Other)
  Sender: FDA-Public Use
  Company Number: US-BIOGENIDEC-2010BI007721

PATIENT
  Sex: Female

DRUGS (4)
  1. AVONEX [Suspect]
     Indication: MULTIPLE SCLEROSIS
     Route: 030
     Dates: start: 19970701, end: 19970101
  2. AVONEX [Suspect]
     Route: 030
     Dates: start: 19980101, end: 20010101
  3. AVONEX [Suspect]
     Route: 030
     Dates: start: 20020101, end: 20030101
  4. AVONEX [Suspect]
     Route: 030
     Dates: start: 20030101

REACTIONS (1)
  - ABORTION SPONTANEOUS [None]
